FAERS Safety Report 9714232 (Version 2)
Quarter: 2013Q4

REPORT INFORMATION
  Report Type: Spontaneous
  Country: US (occurrence: US)
  Receive Date: 20131126
  Receipt Date: 20131126
  Transmission Date: 20140711
  Serious: No
  Sender: FDA-Public Use
  Company Number: US-GILEAD-2008-0018907

PATIENT
  Sex: Female
  Weight: 131.54 kg

DRUGS (12)
  1. LETAIRIS [Suspect]
     Indication: COR PULMONALE CHRONIC
     Route: 048
     Dates: start: 20081009, end: 20081107
  2. COUMADIN [Concomitant]
     Route: 048
  3. ALBUTEROL INHALER [Concomitant]
     Route: 055
  4. REVATIO [Concomitant]
     Route: 048
  5. TORSEMIDE [Concomitant]
     Route: 048
  6. ASMANEX [Concomitant]
     Route: 055
  7. LORAZEPAM [Concomitant]
     Route: 048
  8. POTASSIUM [Concomitant]
     Route: 048
  9. PRILOSEC [Concomitant]
     Route: 048
  10. SPIRONOLACTONE [Concomitant]
     Route: 048
  11. LEXAPRO [Concomitant]
     Route: 048
  12. ZETIA [Concomitant]
     Route: 048

REACTIONS (6)
  - Insomnia [Unknown]
  - Palpitations [Unknown]
  - Headache [Unknown]
  - Swelling [Unknown]
  - Nasal congestion [Unknown]
  - Flushing [Unknown]
